FAERS Safety Report 23951893 (Version 1)
Quarter: 2024Q2

REPORT INFORMATION
  Report Type: Spontaneous
  Country: US (occurrence: US)
  Receive Date: 20240607
  Receipt Date: 20240607
  Transmission Date: 20240715
  Serious: No
  Sender: FDA-Public Use
  Company Number: US-TARO PHARMACEUTICALS USA INC.-2023TAR01087

PATIENT

DRUGS (1)
  1. IMIQUIMOD [Suspect]
     Active Substance: IMIQUIMOD
     Indication: Actinic keratosis
     Dosage: UNK TO LIP, 3-4 TIMES
     Route: 061

REACTIONS (4)
  - Lip blister [Not Recovered/Not Resolved]
  - Cheilitis [Not Recovered/Not Resolved]
  - Application site scab [Not Recovered/Not Resolved]
  - Off label use [Unknown]
